FAERS Safety Report 4763306-2 (Version None)
Quarter: 2005Q3

REPORT INFORMATION
  Report Type: 
  Country: None (occurrence: None)
  Receive Date: 20050902
  Receipt Date: 20050819
  Transmission Date: 20060218
  Serious: Yes (Death, Hospitalization, Other)
  Sender: FDA-Public Use
  Company Number: 203679

PATIENT
  Sex: Female

DRUGS (2)
  1. AVONEX [Suspect]
     Indication: MULTIPLE SCLEROSIS
     Dosage: 30 UG;QW;IM
     Route: 030
     Dates: end: 20040101
  2. AVONEX [Suspect]
     Indication: MULTIPLE SCLEROSIS
     Dosage: 30 UG;QW;IM
     Route: 030
     Dates: start: 19960101

REACTIONS (8)
  - BACK PAIN [None]
  - BREAST CANCER FEMALE [None]
  - DEVICE FAILURE [None]
  - FALL [None]
  - HEAD INJURY [None]
  - LACERATION [None]
  - SPINAL CORD DISORDER [None]
  - SWELLING [None]
